FAERS Safety Report 20924836 (Version 4)
Quarter: 2022Q3

REPORT INFORMATION
  Report Type: Spontaneous
  Country: CA (occurrence: CA)
  Receive Date: 20220607
  Receipt Date: 20220727
  Transmission Date: 20221027
  Serious: Yes (Death, Hospitalization, Other)
  Sender: FDA-Public Use
  Company Number: CA-PFIZER INC-202200787407

PATIENT
  Age: 80 Year
  Sex: Female

DRUGS (2)
  1. IBRANCE [Suspect]
     Active Substance: PALBOCICLIB
     Dosage: DAILY FOR 21 DAYS, OFF 7 DAYS
     Route: 048
     Dates: start: 20220525
  2. LETROZOLE [Concomitant]
     Active Substance: LETROZOLE
     Dosage: UNK

REACTIONS (8)
  - Death [Fatal]
  - Organising pneumonia [Unknown]
  - Cardiac disorder [Unknown]
  - Pneumonia [Unknown]
  - Dyspnoea exertional [Not Recovered/Not Resolved]
  - Neoplasm progression [Unknown]
  - Diarrhoea [Recovered/Resolved]
  - Nausea [Unknown]

NARRATIVE: CASE EVENT DATE: 20220526
